FAERS Safety Report 5239743-9 (Version None)
Quarter: 2007Q1

REPORT INFORMATION
  Report Type: 
  Country: None (occurrence: None)
  Receive Date: 20070216
  Receipt Date: 20070129
  Transmission Date: 20070707
  Serious: Yes (Hospitalization, Disabling)
  Sender: FDA-Public Use
  Company Number: ES-ROCHE-480751

PATIENT
  Age: 74 Year
  Sex: Male
  Weight: 60 kg

DRUGS (6)
  1. CELLCEPT [Suspect]
     Route: 065
     Dates: start: 20061015
  2. PROGRAF [Interacting]
     Route: 065
     Dates: start: 20061106
  3. DACORTIN [Interacting]
     Route: 048
     Dates: start: 20061015
  4. OMEPRAZOLE [Interacting]
     Indication: OESOPHAGITIS
     Dosage: LONG TERM
     Route: 048
  5. AMLODIPINE [Concomitant]
     Indication: ESSENTIAL HYPERTENSION
     Dosage: LONG TERM
     Route: 048
  6. DARBEPOETIN ALFA [Concomitant]
     Route: 058
     Dates: start: 20061115

REACTIONS (3)
  - DIABETES MELLITUS [None]
  - DRUG INTERACTION [None]
  - URINARY TRACT INFECTION [None]
